FAERS Safety Report 9796430 (Version 1)
Quarter: 2014Q1

REPORT INFORMATION
  Report Type: Spontaneous
  Country: US (occurrence: US)
  Receive Date: 20140103
  Receipt Date: 20140103
  Transmission Date: 20141002
  Serious: Yes (Hospitalization, Other)
  Sender: FDA-Public Use
  Company Number: US-CUBIST PHARMACEUTICAL, INC.-2014CBST000007

PATIENT
  Sex: 0

DRUGS (4)
  1. CUBICIN [Suspect]
     Indication: ENDOCARDITIS STAPHYLOCOCCAL
     Dosage: 6 MG/KG, QD
     Route: 042
  2. CUBICIN [Suspect]
     Indication: SEPTIC EMBOLUS
  3. CUBICIN [Suspect]
     Indication: PULMONARY EMBOLISM
  4. CIPROFLOXACIN [Concomitant]
     Indication: BACTERIAL PYELONEPHRITIS
     Dosage: 500 MG, BID
     Route: 048

REACTIONS (3)
  - Lung infiltration [Recovering/Resolving]
  - Condition aggravated [Recovering/Resolving]
  - Drug ineffective [Unknown]
